FAERS Safety Report 21459475 (Version 1)
Quarter: 2022Q4

REPORT INFORMATION
  Report Type: Spontaneous
  Country: US (occurrence: None)
  Receive Date: 20221014
  Receipt Date: 20221014
  Transmission Date: 20230113
  Serious: No
  Sender: FDA-Public Use
  Company Number: None

PATIENT
  Age: 69 Year
  Sex: Female

DRUGS (1)
  1. TRISENOX [Suspect]
     Active Substance: ARSENIC TRIOXIDE

REACTIONS (5)
  - Chills [None]
  - Infusion related reaction [None]
  - Body temperature increased [None]
  - Heart rate increased [None]
  - Respiratory rate increased [None]

NARRATIVE: CASE EVENT DATE: 20221011
